APPROVED DRUG PRODUCT: LINEZOLID
Active Ingredient: LINEZOLID
Strength: 600MG
Dosage Form/Route: TABLET;ORAL
Application: A091210 | Product #001
Applicant: GATE PHARMACEUTICALS
Approved: Feb 5, 2016 | RLD: No | RS: No | Type: DISCN